FAERS Safety Report 6640359-8 (Version None)
Quarter: 2010Q1

REPORT INFORMATION
  Report Type: 
  Country: None (occurrence: None)
  Receive Date: 20100303
  Receipt Date: 20090202
  Transmission Date: 20100710
  Serious: Yes (Disabling)
  Sender: FDA-Public Use
  Company Number: 558943

PATIENT
  Age: 46 Year
  Sex: Female
  Weight: 50.9 kg

DRUGS (9)
  1. BONIVA [Suspect]
     Indication: OSTEOPOROSIS
     Dosage: 3 MG 1 PER 3 MONTH INTRAVENOUS
     Route: 042
     Dates: start: 20070220, end: 20080320
  2. BONIVA [Suspect]
     Indication: OSTEOPOROSIS
     Dosage: ORAL
     Route: 048
  3. AMITRIPTYLINE HYDROCHLORIDE [Concomitant]
  4. ESTRATEST [Concomitant]
  5. MIDRIN (DICHLORALPHENAZONE/ISOMETHEPTENE MUCATE/PARACETAMOL) [Concomitant]
  6. SYNTEST (ESTROGENS, ESTERIFIED/METHYLTESTOSTERONE) [Concomitant]
  7. XANAX [Concomitant]
  8. VITAMIN D NOS (VITAMIN D NOS) [Concomitant]
  9. CALCIUM (CALCIUM) [Concomitant]

REACTIONS (4)
  - ARTHRALGIA [None]
  - COCCYDYNIA [None]
  - DYSPEPSIA [None]
  - MYALGIA [None]
